FAERS Safety Report 6793927-7 (Version None)
Quarter: 2010Q2

REPORT INFORMATION
  Report Type: 
  Country: None (occurrence: None)
  Receive Date: 20100624
  Receipt Date: 20090317
  Transmission Date: 20101027
  Serious: Yes (Hospitalization, Other)
  Sender: FDA-Public Use
  Company Number: US-PFIZER INC-2009184992

PATIENT
  Sex: Female
  Weight: 72 kg

DRUGS (6)
  1. PROVERA [Suspect]
     Indication: MENOPAUSAL SYMPTOMS
     Dosage: 2.5 MG, UNK
     Dates: start: 19910101, end: 19960101
  2. PREMARIN [Suspect]
     Indication: MENOPAUSAL SYMPTOMS
     Dosage: 0.625 MG, UNK
     Dates: start: 19910101, end: 19960101
  3. PREMPRO [Suspect]
     Indication: MENOPAUSAL SYMPTOMS
     Dosage: 0.625 MG, 2.5 MG
     Dates: start: 19960101, end: 20000831
  4. ZESTRIL [Concomitant]
     Indication: BLOOD PRESSURE
     Dosage: UNK
     Dates: start: 19910101
  5. CORGARD [Concomitant]
     Indication: BLOOD PRESSURE
     Dosage: UNK
     Dates: start: 19910101
  6. MOTRIN [Concomitant]
     Indication: ARTHRITIS
     Dosage: UNK
     Dates: start: 19980101

REACTIONS (2)
  - DEEP VEIN THROMBOSIS [None]
  - OVARIAN CANCER [None]
